FAERS Safety Report 15277896 (Version 1)
Quarter: 2018Q3

REPORT INFORMATION
  Report Type: Spontaneous
  Country: CA (occurrence: CA)
  Receive Date: 20180814
  Receipt Date: 20180814
  Transmission Date: 20181010
  Serious: Yes (Disabling)
  Sender: FDA-Public Use
  Company Number: CA-SUNOVION-2018SUN003140

PATIENT
  Age: 31 Year
  Sex: Male
  Weight: 100.68 kg

DRUGS (1)
  1. APTIOM [Suspect]
     Active Substance: ESLICARBAZEPINE ACETATE
     Indication: PETIT MAL EPILEPSY
     Dosage: 800 MG, QD
     Route: 048

REACTIONS (2)
  - Off label use [Unknown]
  - Myalgia [Unknown]
